FAERS Safety Report 13298438 (Version 2)
Quarter: 2017Q1

REPORT INFORMATION
  Report Type: Spontaneous
  Country: AR (occurrence: AR)
  Receive Date: 20170306
  Receipt Date: 20170320
  Transmission Date: 20170428
  Serious: Yes (Other)
  Sender: FDA-Public Use
  Company Number: AR-BAYER-2017-041418

PATIENT
  Age: 78 Year
  Sex: Female

DRUGS (2)
  1. ADEMPAS [Suspect]
     Active Substance: RIOCIGUAT
     Dosage: 2.5 MG, Q8HR
     Route: 048
     Dates: start: 201609, end: 201612
  2. ADEMPAS [Suspect]
     Active Substance: RIOCIGUAT
     Dosage: UNK

REACTIONS (3)
  - Vascular resistance pulmonary increased [Recovered/Resolved]
  - Brain natriuretic peptide increased [Recovered/Resolved]
  - Pulmonary arterial pressure increased [Recovered/Resolved]

NARRATIVE: CASE EVENT DATE: 201612
